FAERS Safety Report 6718647-6 (Version None)
Quarter: 2010Q2

REPORT INFORMATION
  Report Type: 
  Country: None (occurrence: None)
  Receive Date: 20100504
  Receipt Date: 20100422
  Transmission Date: 20101027
  Serious: Yes (Hospitalization, Other)
  Sender: FDA-Public Use
  Company Number: 220010K06BRA

PATIENT
  Age: 2 Year
  Sex: Female

DRUGS (3)
  1. SAIZEN [Suspect]
     Dosage: 8 MG, 1 IN 1 D, SUBCUTANEOUS
     Route: 058
     Dates: start: 20050420, end: 20060728
  2. SAIZEN [Suspect]
     Dosage: 8 MG, 1 IN 1 D, SUBCUTANEOUS
     Route: 058
     Dates: start: 20070326, end: 20080918
  3. SAIZEN [Suspect]

REACTIONS (3)
  - CONVULSION [None]
  - NERVOUS SYSTEM DISORDER [None]
  - NO THERAPEUTIC RESPONSE [None]
